FAERS Safety Report 6131954-3 (Version None)
Quarter: 2009Q1

REPORT INFORMATION
  Report Type: 
  Country: None (occurrence: None)
  Receive Date: 20090325
  Receipt Date: 20090316
  Transmission Date: 20090719
  Serious: Yes (Hospitalization)
  Sender: FDA-Public Use
  Company Number: JP-BRISTOL-MYERS SQUIBB COMPANY-14516496

PATIENT
  Age: 87 Year
  Sex: Female

DRUGS (9)
  1. SINEMET [Suspect]
     Indication: PARKINSON'S DISEASE
     Dosage: STRENGTH 100MG 2 TABS A DAY.  NOV2006 TO UNKNOWN:100MG BID 01APR08 TO 09FEB09:100MG BID(315 DAYS)
     Route: 048
     Dates: start: 20080401, end: 20090209
  2. SYMMETREL [Suspect]
     Indication: PARKINSON'S DISEASE
     Dosage: FORM = TABS STREMGTH 100 MG NOV2006 TO UNKNOWN:100MG BID 01APR08 TO 09FEB09:100MG BID(315 DAYS)
     Route: 048
     Dates: start: 20061101, end: 20090209
  3. MEVALOTIN TABS 10 MG [Suspect]
     Indication: HYPERLIPIDAEMIA
     Dosage: FORM = TABS, 1 TABLET PER DOSE
     Route: 048
     Dates: start: 20080506
  4. PERMAX [Suspect]
     Indication: PARKINSON'S DISEASE
     Dosage: FORM = TABS STRENGTH 50 MCG NOV2006 TO UNKNOWN:50 MCG/D 01APR08 TO 09FEB09:50 MCG/D(315 DAYS)
     Route: 048
     Dates: start: 20080401, end: 20090209
  5. CEREDIST [Suspect]
     Indication: SPINOCEREBELLAR DISORDER
     Dosage: FORM = TABS 10MG FROM NOV06 5MG TAB BID FROM 01APR08
     Route: 048
     Dates: start: 20061101
  6. ZANTAC [Suspect]
     Indication: GASTRIC ULCER
     Dosage: FORM = TABS 150MG TAB, ALSO TAKEN FROM 06JAN2009.
     Route: 048
     Dates: start: 20061101
  7. ADALAT [Suspect]
     Indication: HYPERTENSION
     Dosage: 20MG TABS TAKEN AS .5 TABLET PER DOSE
     Route: 048
     Dates: start: 20080401, end: 20090208
  8. AROTINOLOL HCL [Suspect]
     Indication: HYPERTENSION
     Dosage: FORM = TABS 10MG TABS,  1 TABLET PER DOSE.
     Route: 048
     Dates: start: 20080401
  9. NITRODERM [Suspect]
     Indication: ANGINA PECTORIS
     Dosage: 25MG TAPE 1 SHEET PER DOSE
     Route: 065
     Dates: start: 20081125

REACTIONS (2)
  - DELIRIUM [None]
  - RHABDOMYOLYSIS [None]
